FAERS Safety Report 9452685 (Version 1)
Quarter: 2013Q3

REPORT INFORMATION
  Report Type: Spontaneous
  Country: US (occurrence: None)
  Receive Date: 20130808
  Receipt Date: 20130808
  Transmission Date: 20140515
  Serious: Yes (Hospitalization)
  Sender: FDA-Public Use
  Company Number: None

PATIENT
  Age: 14 Year
  Sex: Male
  Weight: 53.8 kg

DRUGS (5)
  1. PEG-L-ASPARAGINASE (PEGASPARGASE, ONCOSPAR) [Suspect]
  2. CYTARABINE [Suspect]
  3. METHOTREXATE [Suspect]
  4. PREDNISONE [Suspect]
  5. VINCRISTINE SULFATE [Suspect]

REACTIONS (12)
  - Eye pain [None]
  - Pyrexia [None]
  - Chills [None]
  - Heart rate increased [None]
  - Respiratory rate increased [None]
  - Blood glucose increased [None]
  - Pupils unequal [None]
  - Intraventricular haemorrhage [None]
  - Activated partial thromboplastin time prolonged [None]
  - Hydrocephalus [None]
  - Oedema [None]
  - Haematoma [None]
